FAERS Safety Report 18972489 (Version 4)
Quarter: 2021Q3

REPORT INFORMATION
  Report Type: Report from Study
  Country: CA (occurrence: CA)
  Receive Date: 20210305
  Receipt Date: 20210809
  Transmission Date: 20211014
  Serious: Yes (Other)
  Sender: FDA-Public Use
  Company Number: PHHY2012CA115664

PATIENT
  Sex: Male

DRUGS (1)
  1. GILENYA [Suspect]
     Active Substance: FINGOLIMOD HYDROCHLORIDE
     Indication: RELAPSING-REMITTING MULTIPLE SCLEROSIS
     Dosage: 0.5 MG, QD
     Route: 048
     Dates: start: 20120305

REACTIONS (5)
  - Product dose omission issue [Unknown]
  - Back pain [Recovering/Resolving]
  - Inappropriate schedule of product administration [Unknown]
  - Expanded disability status scale score increased [Unknown]
  - Trigeminal neuralgia [Unknown]
